FAERS Safety Report 6773569-X (Version None)
Quarter: 2010Q2

REPORT INFORMATION
  Report Type: 
  Country: None (occurrence: None)
  Receive Date: 20100616
  Receipt Date: 20100609
  Transmission Date: 20101027
  Serious: Yes (Hospitalization)
  Sender: FDA-Public Use
  Company Number: US-AMGEN-QUU403517

PATIENT
  Sex: Female
  Weight: 93.5 kg

DRUGS (4)
  1. PROCRIT [Suspect]
     Indication: ANAEMIA
     Dates: start: 20100210, end: 20100312
  2. SYNTHROID [Concomitant]
  3. INTERFERON [Concomitant]
  4. NEUPOGEN [Concomitant]

REACTIONS (2)
  - ANAEMIA [None]
  - ANTIBODY TEST POSITIVE [None]
